FAERS Safety Report 4765417-4 (Version None)
Quarter: 2005Q3

REPORT INFORMATION
  Report Type: 
  Country: None (occurrence: None)
  Receive Date: 20050908
  Receipt Date: 20050826
  Transmission Date: 20060218
  Serious: Yes (Death)
  Sender: FDA-Public Use
  Company Number: S05-CAN-03096-01

PATIENT
  Age: 45 Year
  Sex: Male

DRUGS (2)
  1. CELEXA [Suspect]
  2. CELEXA [Suspect]
     Dosage: 3200 MG ONCE

REACTIONS (6)
  - BLOOD PH DECREASED [None]
  - CARDIAC ARREST [None]
  - COMA [None]
  - COMPLETED SUICIDE [None]
  - INTENTIONAL MISUSE [None]
  - OVERDOSE [None]
